FAERS Safety Report 14823447 (Version 2)
Quarter: 2018Q2

REPORT INFORMATION
  Report Type: Spontaneous
  Country: TW (occurrence: TW)
  Receive Date: 20180427
  Receipt Date: 20180525
  Transmission Date: 20180711
  Serious: Yes (Other)
  Sender: FDA-Public Use
  Company Number: TW-AMGEN-TWNSP2018056781

PATIENT
  Age: 65 Year
  Sex: Female

DRUGS (4)
  1. ENBREL [Suspect]
     Active Substance: ETANERCEPT
     Indication: RHEUMATOID ARTHRITIS
     Dosage: 25 MG, TWICE WEEKLY (BIW)
     Route: 058
     Dates: start: 20111226
  2. ENBREL [Suspect]
     Active Substance: ETANERCEPT
     Dosage: 25 MG, EVERY FOUR DAYS (Q4D)
     Route: 058
     Dates: start: 20170817, end: 20180409
  3. SALAZINE [Concomitant]
     Active Substance: SULFASALAZINE
     Dosage: 2 DF, ONCE DAILY (QD)
  4. ARHEUMA [Concomitant]
     Dosage: 0.5 DF, ONCE DAILY (QD)

REACTIONS (3)
  - Extrapulmonary tuberculosis [Not Recovered/Not Resolved]
  - Fibroma [Not Recovered/Not Resolved]
  - Product use issue [Unknown]

NARRATIVE: CASE EVENT DATE: 20170817
